FAERS Safety Report 8906503 (Version 1)
Quarter: 2012Q4

REPORT INFORMATION
  Report Type: Spontaneous
  Country: GB (occurrence: None)
  Receive Date: 20121108
  Receipt Date: 20121108
  Transmission Date: 20130627
  Serious: Yes (Hospitalization)
  Sender: FDA-Public Use
  Company Number: 2012MA013028

PATIENT
  Age: 59 Year
  Sex: Male

DRUGS (6)
  1. SERTRALINE HYDROCHLORIDE [Suspect]
     Route: 048
     Dates: start: 20120926, end: 20120926
  2. PREGABALIN [Concomitant]
  3. LISINOPRIL [Concomitant]
  4. SIMVASTATIN [Concomitant]
  5. OXYBUTYNIN [Concomitant]
  6. IBUPROFEN [Concomitant]

REACTIONS (2)
  - Atrial fibrillation [None]
  - Fall [None]
